FAERS Safety Report 25074295 (Version 1)
Quarter: 2025Q1

REPORT INFORMATION
  Report Type: Spontaneous
  Country: US (occurrence: None)
  Receive Date: 20250313
  Receipt Date: 20250313
  Transmission Date: 20250409
  Serious: Yes (Other)
  Sender: FDA-CTU
  Company Number: None

PATIENT
  Age: 60 Year
  Sex: Female
  Weight: 117 kg

DRUGS (12)
  1. SYMBICORT [Suspect]
     Active Substance: BUDESONIDE\FORMOTEROL FUMARATE DIHYDRATE
     Indication: Asthma
     Dosage: OTHER QUANTITY : 2 PUFF(S);?FREQUENCY : TWICE A DAY;?
     Route: 055
     Dates: start: 20250312, end: 20250312
  2. SYMBICORT [Suspect]
     Active Substance: BUDESONIDE\FORMOTEROL FUMARATE DIHYDRATE
     Indication: Pneumonia
  3. EFFEXOR [Concomitant]
     Active Substance: VENLAFAXINE HYDROCHLORIDE
  4. WELLBUTRIN [Concomitant]
     Active Substance: BUPROPION HYDROCHLORIDE
  5. CONCERTA [Concomitant]
     Active Substance: METHYLPHENIDATE HYDROCHLORIDE
  6. TRESIBA [Concomitant]
     Active Substance: INSULIN DEGLUDEC
  7. HUMALOG [Concomitant]
     Active Substance: INSULIN LISPRO
  8. MOUNJARO [Concomitant]
     Active Substance: TIRZEPATIDE
  9. DOXYCYCLINE [Concomitant]
     Active Substance: DOXYCYCLINE
  10. CapMist [Concomitant]
  11. ALBUTEROL [Concomitant]
     Active Substance: ALBUTEROL
  12. TYLENOL [Concomitant]
     Active Substance: ACETAMINOPHEN

REACTIONS (3)
  - Nausea [None]
  - Upper-airway cough syndrome [None]
  - Vomiting [None]

NARRATIVE: CASE EVENT DATE: 20250312
